FAERS Safety Report 4268188-3 (Version None)
Quarter: 2004Q1

REPORT INFORMATION
  Report Type: 
  Country: None (occurrence: None)
  Receive Date: 20040109
  Receipt Date: 20040105
  Transmission Date: 20041129
  Serious: Yes (Hospitalization)
  Sender: FDA-Public Use
  Company Number: WAES 0401GBR00021

PATIENT
  Age: 11 Year
  Sex: Male
  Weight: 43 kg

DRUGS (3)
  1. DESLORATADINE [Concomitant]
     Route: 048
     Dates: start: 20031106
  2. SINGULAIR [Suspect]
     Route: 048
     Dates: start: 20031112, end: 20031120
  3. SINGULAIR [Suspect]
     Indication: CONJUNCTIVITIS
     Route: 048
     Dates: start: 20031112, end: 20031120

REACTIONS (3)
  - CHEST PAIN [None]
  - DIZZINESS [None]
  - MENTAL DISORDER [None]
